FAERS Safety Report 21970314 (Version 1)
Quarter: 2023Q1

REPORT INFORMATION
  Report Type: Spontaneous
  Country: GB (occurrence: GB)
  Receive Date: 20230209
  Receipt Date: 20230209
  Transmission Date: 20230418
  Serious: Yes (Life-Threatening, Disabling, Other)
  Sender: FDA-Public Use
  Company Number: GB-MHRA-MED-202301251713392590-RNMSZ

PATIENT

DRUGS (1)
  1. CETIRIZINE [Suspect]
     Active Substance: CETIRIZINE HYDROCHLORIDE
     Indication: Urticaria chronic
     Dosage: 40 - 60MG PER DAY DERMATOLOGIST ADVISED
     Route: 065
     Dates: end: 20230125

REACTIONS (2)
  - Medication error [Unknown]
  - Suicidal ideation [Not Recovered/Not Resolved]
